FAERS Safety Report 7423262-5 (Version None)
Quarter: 2011Q2

REPORT INFORMATION
  Report Type: 
  Country: None (occurrence: None)
  Receive Date: 20110419
  Receipt Date: 20091229
  Transmission Date: 20111010
  Serious: No
  Sender: FDA-Public Use
  Company Number: US-BAYER-200944027NA

PATIENT
  Sex: Female

DRUGS (1)
  1. YAZ [Suspect]
     Route: 048

REACTIONS (6)
  - UNEVALUABLE EVENT [None]
  - FATIGUE [None]
  - DIARRHOEA [None]
  - COPPER METABOLISM DISORDER [None]
  - MOOD SWINGS [None]
  - ANAEMIA [None]
